FAERS Safety Report 18977641 (Version 2)
Quarter: 2022Q1

REPORT INFORMATION
  Report Type: Report from Study
  Country: TH (occurrence: TH)
  Receive Date: 20210306
  Receipt Date: 20220103
  Transmission Date: 20220423
  Serious: Yes (Hospitalization)
  Sender: FDA-Public Use
  Company Number: TH-NOVARTISPH-NVSC2021TH044874

PATIENT
  Sex: Female

DRUGS (2)
  1. ENTRESTO [Suspect]
     Active Substance: SACUBITRIL\VALSARTAN
     Indication: Cardiac failure
     Dosage: 0.5 DOSAGE FORM (HALF TAB IN MORNING AND HALF TAB IN EVENING), BID
     Route: 065
  2. ENTRESTO [Suspect]
     Active Substance: SACUBITRIL\VALSARTAN
     Dosage: 0.5 DOSAGE FORM (100 MG A HALF OF TABLET TWICE DAILY AFTER BREAKFAST AND DINNER), BID
     Route: 048

REACTIONS (2)
  - Coronary artery stenosis [Unknown]
  - Wrong technique in product usage process [Unknown]
